FAERS Safety Report 24990730 (Version 3)
Quarter: 2025Q1

REPORT INFORMATION
  Report Type: Spontaneous
  Country: US (occurrence: US)
  Receive Date: 20250220
  Receipt Date: 20250324
  Transmission Date: 20250409
  Serious: No
  Sender: PFIZER
  Company Number: US-PFIZER INC-PV202500019249

PATIENT
  Age: 66 Year
  Sex: Female

DRUGS (12)
  1. PREMARIN [Suspect]
     Active Substance: ESTROGENS, CONJUGATED
     Dosage: 0.5 G, DAILY, FOR 2 WEEKS
     Route: 067
  2. PREMARIN [Suspect]
     Active Substance: ESTROGENS, CONJUGATED
     Dosage: 0.5 G, 2X/WEEK
     Route: 067
  3. MELOXICAM [Concomitant]
     Active Substance: MELOXICAM
  4. ATORVASTATIN [Concomitant]
     Active Substance: ATORVASTATIN
  5. BRIMONIDINE [Concomitant]
     Active Substance: BRIMONIDINE TARTRATE
  6. DORZOLAMIDE\TIMOLOL [Concomitant]
     Active Substance: DORZOLAMIDE\TIMOLOL
  7. KETOROLAC [Concomitant]
     Active Substance: KETOROLAC TROMETHAMINE
  8. DUREZOL [Concomitant]
     Active Substance: DIFLUPREDNATE
  9. ZONISAMIDE [Concomitant]
     Active Substance: ZONISAMIDE
  10. THYROID [Concomitant]
     Active Substance: LEVOTHYROXINE\LIOTHYRONINE
  11. PRISTIQ EXTENDED-RELEASE [Concomitant]
     Active Substance: DESVENLAFAXINE SUCCINATE
  12. ARMODAFINIL [Concomitant]
     Active Substance: ARMODAFINIL

REACTIONS (2)
  - Radiation sickness syndrome [Unknown]
  - Off label use [Unknown]
